FAERS Safety Report 16909595 (Version 3)
Quarter: 2020Q3

REPORT INFORMATION
  Report Type: Spontaneous
  Country: US (occurrence: US)
  Receive Date: 20191011
  Receipt Date: 20200729
  Transmission Date: 20201102
  Serious: Yes (Other)
  Sender: FDA-Public Use
  Company Number: US-GILEAD-2019-0432213

PATIENT
  Age: 60 Year
  Sex: Male
  Weight: 99.77 kg

DRUGS (7)
  1. ODEFSEY [Interacting]
     Active Substance: EMTRICITABINE\RILPIVIRINE HYDROCHLORIDE\TENOFOVIR ALAFENAMIDE FUMARATE
     Indication: HIV INFECTION
     Dosage: UNK
     Route: 065
     Dates: start: 2016
  2. BIKTARVY [Suspect]
     Active Substance: BICTEGRAVIR SODIUM\EMTRICITABINE\TENOFOVIR ALAFENAMIDE FUMARATE
     Indication: HIV INFECTION
     Dosage: UNK
     Route: 065
  3. GABAPENTIN. [Suspect]
     Active Substance: GABAPENTIN
     Indication: PRODUCT USED FOR UNKNOWN INDICATION
     Dosage: UNK
     Route: 065
  4. BENADRYL [Suspect]
     Active Substance: DIPHENHYDRAMINE HYDROCHLORIDE
     Indication: PRODUCT USED FOR UNKNOWN INDICATION
     Dosage: UNK
     Route: 065
  5. KLONOPIN [Concomitant]
     Active Substance: CLONAZEPAM
     Dosage: UNK
     Dates: end: 2018
  6. MARIJUANA [Suspect]
     Active Substance: CANNABIS SATIVA SUBSP. INDICA TOP
     Indication: PRODUCT USED FOR UNKNOWN INDICATION
     Dosage: MEDICAL, 30:1 CBD RATIO
     Route: 065
  7. QUERCITIN [DIETARY SUPPLEMENT] [Suspect]
     Active Substance: DIETARY SUPPLEMENT
     Indication: HYPERSENSITIVITY
     Dosage: UNK
     Route: 065

REACTIONS (24)
  - Hypersensitivity [Not Recovered/Not Resolved]
  - Multiple allergies [Not Recovered/Not Resolved]
  - Erythema [Unknown]
  - Emotional distress [Unknown]
  - Product storage error [Unknown]
  - Poisoning [Unknown]
  - Gastrooesophageal reflux disease [Not Recovered/Not Resolved]
  - Mental disorder [Not Recovered/Not Resolved]
  - Pain [Not Recovered/Not Resolved]
  - Histamine level increased [Not Recovered/Not Resolved]
  - Drug interaction [Unknown]
  - Illness [Unknown]
  - Flushing [Not Recovered/Not Resolved]
  - Disinfectant poisoning [Not Recovered/Not Resolved]
  - Autonomic nervous system imbalance [Unknown]
  - Gingival disorder [Unknown]
  - Muscle atrophy [Not Recovered/Not Resolved]
  - Burning sensation [Unknown]
  - Irritability [Unknown]
  - Spinal cord disorder [Unknown]
  - Feeling abnormal [Unknown]
  - Autonomic neuropathy [Unknown]
  - Headache [Unknown]
  - Magnetic resonance imaging abnormal [Unknown]
